FAERS Safety Report 8181724-X (Version None)
Quarter: 2012Q1

REPORT INFORMATION
  Report Type: 
  Country: None (occurrence: None)
  Receive Date: 20120302
  Receipt Date: 20120223
  Transmission Date: 20120608
  Serious: Yes (Other)
  Sender: FDA-Public Use
  Company Number: US-FRI-1000028633

PATIENT
  Sex: Female

DRUGS (1)
  1. LEXAPRO [Suspect]
     Dosage: 10 MG
     Route: 048

REACTIONS (7)
  - MOVEMENT DISORDER [None]
  - MUSCLE TWITCHING [None]
  - FALL [None]
  - DYSKINESIA [None]
  - VISUAL IMPAIRMENT [None]
  - FEELING ABNORMAL [None]
  - PARAESTHESIA [None]
